FAERS Safety Report 9960231 (Version 1)
Quarter: 2014Q1

REPORT INFORMATION
  Report Type: Report from Study
  Country: US (occurrence: US)
  Receive Date: 20140305
  Receipt Date: 20140305
  Transmission Date: 20141002
  Serious: No
  Sender: FDA-Public Use
  Company Number: US-ABBVIE-13P-163-1101450-00

PATIENT
  Age: 72 Year
  Sex: Female

DRUGS (9)
  1. HUMIRA [Suspect]
     Indication: PSORIASIS
     Dates: start: 20130515
  2. HUMIRA [Suspect]
     Dates: start: 20130522
  3. HUMIRA [Suspect]
     Dates: start: 20130605
  4. GENERIC MOBIC [Concomitant]
     Indication: OSTEOARTHRITIS
  5. GLUCOSAMINE [Concomitant]
     Indication: OSTEOARTHRITIS
  6. AMLODIPINE [Concomitant]
     Indication: HYPERTENSION
     Dosage: 5 MG DAILY
  7. LISINOPRIL [Concomitant]
     Indication: HYPERTENSION
     Dosage: 20 MG DAILY
  8. VITAMIN D3 [Concomitant]
     Indication: VITAMIN SUPPLEMENTATION
  9. VITAMIN B [Concomitant]
     Indication: VITAMIN SUPPLEMENTATION

REACTIONS (1)
  - Injection site haemorrhage [Recovered/Resolved]
